FAERS Safety Report 7572158-7 (Version None)
Quarter: 2011Q2

REPORT INFORMATION
  Report Type: 
  Country: None (occurrence: None)
  Receive Date: 20110624
  Receipt Date: 20110610
  Transmission Date: 20111010
  Serious: Yes (Hospitalization)
  Sender: FDA-Public Use
  Company Number: US-CELGENEUS-163-21880-11040554

PATIENT
  Sex: Male

DRUGS (25)
  1. CENTRUM SILVER [Concomitant]
     Dosage: 1
     Route: 048
  2. PLAVIX [Concomitant]
     Dosage: .5 TAB
     Route: 048
  3. FINASTERIDE [Concomitant]
     Dosage: 5 MILLIGRAM
     Route: 048
  4. LOVAZA [Concomitant]
     Dosage: 2 IN AM + 2 IN PM
     Route: 048
  5. COREG [Concomitant]
     Dosage: .5 TABLET
     Route: 048
  6. LASIX [Concomitant]
     Dosage: 20 MILLIGRAM
     Route: 048
  7. METFORMIN HCL [Concomitant]
     Dosage: 500 MILLIGRAM
     Route: 048
  8. REVLIMID [Suspect]
     Indication: MULTIPLE MYELOMA
     Dosage: 15 MILLIGRAM
     Route: 048
     Dates: start: 20110317
  9. AMLODIPINE [Concomitant]
     Dosage: 10 MILLIGRAM
     Route: 048
  10. TAMSULOSIN HCL [Concomitant]
     Dosage: .4 MILLIGRAM
     Route: 048
  11. ASPIRIN [Concomitant]
     Dosage: 81 MILLIGRAM
     Route: 048
  12. ADVAIR DISKUS 100/50 [Concomitant]
     Dosage: 250MCG/50MCG  1 PUFF
     Route: 055
  13. INDAPAMIDE [Concomitant]
     Dosage: .5 TAB
     Route: 048
  14. SIMVASTATIN [Concomitant]
     Dosage: 20 MILLIGRAM
     Route: 048
  15. PREDNISONE [Concomitant]
     Indication: ASTHMA
     Dosage: 40 MILLIGRAM
     Route: 048
     Dates: start: 20110301
  16. AMITRIPTYLINE HCL [Concomitant]
     Dosage: 10 MILLIGRAM
     Route: 048
  17. CARBIDOPA AND LEVODOPA [Concomitant]
     Dosage: 25MG/100MG
     Route: 048
  18. MAALOX MAX [Concomitant]
     Dosage: 2 TABLET
     Route: 048
  19. NITROSTAT [Concomitant]
     Dosage: 1
     Route: 060
  20. COMPAZINE [Concomitant]
     Dosage: 10 MILLIGRAM
     Route: 048
  21. DEXAMETHASONE [Concomitant]
     Dosage: 20 MILLIGRAM
     Route: 065
  22. OXYCODONE HCL [Concomitant]
     Dosage: 5 MILLIGRAM
     Route: 048
  23. LISINOPRIL [Concomitant]
     Route: 048
  24. ALBUTEROL SULFATE AUTOHALER [Concomitant]
     Dosage: 2 PUFFS
     Route: 055
  25. CETAPHIL [Concomitant]
     Route: 061

REACTIONS (2)
  - ASTHMA [None]
  - FATIGUE [None]
